FAERS Safety Report 7949460-X (Version None)
Quarter: 2011Q4

REPORT INFORMATION
  Report Type: 
  Country: None (occurrence: None)
  Receive Date: 20111130
  Receipt Date: 20111125
  Transmission Date: 20120403
  Serious: Yes (Other)
  Sender: FDA-Public Use
  Company Number: JP-GLAXOSMITHKLINE-B0765575A

PATIENT
  Sex: Male

DRUGS (1)
  1. FLUTICASONE PROPIONATE/SALMETEROL [Suspect]
     Indication: PRODUCT USED FOR UNKNOWN INDICATION
     Dosage: 250MCG PER DAY
     Route: 055
     Dates: start: 20111031, end: 20111116

REACTIONS (2)
  - COMPUTERISED TOMOGRAM ABNORMAL [None]
  - NEOPLASM MALIGNANT [None]
